FAERS Safety Report 10384530 (Version 4)
Quarter: 2014Q4

REPORT INFORMATION
  Report Type: Report from Study
  Country: ZA (occurrence: ZA)
  Receive Date: 20140814
  Receipt Date: 20141107
  Transmission Date: 20150528
  Serious: Yes (Congenital Anomaly)
  Sender: FDA-Public Use
  Company Number: ZA-ABBVIE-14P-143-1269167-00

PATIENT
  Age: 1 Day
  Weight: 2.18 kg

DRUGS (10)
  1. ETHAMBUTOL [Concomitant]
     Active Substance: ETHAMBUTOL HYDROCHLORIDE
     Indication: MATERNAL EXPOSURE TIMING UNSPECIFIED
     Route: 064
  2. FOLATE SUPPLEMENT [Concomitant]
     Indication: MATERNAL EXPOSURE TIMING UNSPECIFIED
     Route: 064
  3. STAVUDINE. [Concomitant]
     Active Substance: STAVUDINE
     Indication: MATERNAL EXPOSURE TIMING UNSPECIFIED
     Route: 064
  4. KALETRA [Suspect]
     Active Substance: LOPINAVIR\RITONAVIR
     Indication: MATERNAL EXPOSURE TIMING UNSPECIFIED
     Route: 064
  5. LAMIVUDINE. [Concomitant]
     Active Substance: LAMIVUDINE
     Indication: MATERNAL EXPOSURE TIMING UNSPECIFIED
     Route: 064
  6. NEVIRAPINE. [Concomitant]
     Active Substance: NEVIRAPINE
     Indication: MATERNAL EXPOSURE TIMING UNSPECIFIED
     Route: 064
  7. PYRAZINAMIDE. [Concomitant]
     Active Substance: PYRAZINAMIDE
     Indication: MATERNAL EXPOSURE TIMING UNSPECIFIED
     Route: 064
  8. TENOFOVIR [Concomitant]
     Active Substance: TENOFOVIR
     Indication: MATERNAL EXPOSURE TIMING UNSPECIFIED
     Route: 064
  9. ISONIAZID. [Concomitant]
     Active Substance: ISONIAZID
     Indication: MATERNAL EXPOSURE TIMING UNSPECIFIED
     Route: 064
  10. RIFAMPIN. [Concomitant]
     Active Substance: RIFAMPIN
     Indication: MATERNAL EXPOSURE TIMING UNSPECIFIED
     Route: 064

REACTIONS (7)
  - Trisomy 21 [Unknown]
  - Pericardial effusion [Unknown]
  - Congenital nose malformation [Unknown]
  - Low set ears [Unknown]
  - Foetal exposure during pregnancy [Unknown]
  - Dysmorphism [Unknown]
  - Foot deformity [Unknown]
